FAERS Safety Report 7734509-X (Version None)
Quarter: 2011Q3

REPORT INFORMATION
  Report Type: 
  Country: None (occurrence: None)
  Receive Date: 20110907
  Receipt Date: 20110826
  Transmission Date: 20111222
  Serious: Yes (Hospitalization)
  Sender: FDA-Public Use
  Company Number: US-GLAXOSMITHKLINE-A0900898A

PATIENT
  Age: 43 Year
  Sex: Female
  Weight: 98 kg

DRUGS (8)
  1. PROZAC [Concomitant]
  2. ZESTORETIC [Concomitant]
  3. INDERAL [Concomitant]
  4. VASOTEC [Concomitant]
  5. AVANDIA [Suspect]
     Indication: DIABETES MELLITUS
     Dosage: 8MG PER DAY
     Route: 048
     Dates: start: 20001002
  6. BUSPAR [Concomitant]
  7. ZESTRIL [Concomitant]
  8. INSULIN [Concomitant]

REACTIONS (1)
  - CORONARY ARTERY DISEASE [None]
